FAERS Safety Report 6309004-5 (Version None)
Quarter: 2009Q3

REPORT INFORMATION
  Report Type: 
  Country: None (occurrence: None)
  Receive Date: 20090813
  Receipt Date: 20090806
  Transmission Date: 20100115
  Serious: Yes (Hospitalization, Other)
  Sender: FDA-Public Use
  Company Number: FR-GILEAD-2009-0023517

PATIENT
  Sex: Female

DRUGS (8)
  1. TRUVADA [Suspect]
     Indication: HIV INFECTION
     Route: 048
     Dates: start: 20050901, end: 20061030
  2. EMTRIVA [Suspect]
     Indication: HIV INFECTION
  3. INVIRASE [Concomitant]
     Indication: HIV INFECTION
     Dates: start: 20050901
  4. NORVIR [Concomitant]
     Indication: HIV INFECTION
     Dates: start: 20050901
  5. ELISOR [Concomitant]
  6. PREVISCAN [Concomitant]
  7. MEPRONIZINE [Concomitant]
  8. ZELITREX [Concomitant]

REACTIONS (2)
  - HYPOKALAEMIA [None]
  - RENAL TUBULAR DISORDER [None]
